FAERS Safety Report 11880263 (Version 1)
Quarter: 2015Q4

REPORT INFORMATION
  Report Type: Spontaneous
  Country: US (occurrence: US)
  Receive Date: 20151230
  Receipt Date: 20151230
  Transmission Date: 20160305
  Serious: No
  Sender: FDA-Public Use
  Company Number: US-ASTRAZENECA-2015SF29019

PATIENT
  Age: 28277 Day
  Sex: Male
  Weight: 76.2 kg

DRUGS (2)
  1. SYMBICORT [Suspect]
     Active Substance: BUDESONIDE\FORMOTEROL FUMARATE DIHYDRATE
     Indication: CHRONIC OBSTRUCTIVE PULMONARY DISEASE
     Dosage: 80/4.5 MCG 120 INHALATIONS, TWO TIMES A DAY
     Route: 055
  2. SYMBICORT [Suspect]
     Active Substance: BUDESONIDE\FORMOTEROL FUMARATE DIHYDRATE
     Indication: CHRONIC OBSTRUCTIVE PULMONARY DISEASE
     Dosage: 80/4.5 MCG 120 INHALATIONS, TWO TIMES A DAY
     Route: 055
     Dates: start: 20151208

REACTIONS (3)
  - Product quality issue [Unknown]
  - Respiratory rate increased [Unknown]
  - Asthenia [Unknown]

NARRATIVE: CASE EVENT DATE: 201512
